FAERS Safety Report 25021320 (Version 1)
Quarter: 2025Q1

REPORT INFORMATION
  Report Type: Spontaneous
  Country: US (occurrence: US)
  Receive Date: 20250228
  Receipt Date: 20250228
  Transmission Date: 20250408
  Serious: No
  Sender: STRIDES
  Company Number: US-STRIDES ARCOLAB LIMITED-2025SP001865

PATIENT
  Age: 62 Year
  Sex: Female

DRUGS (13)
  1. CYCLOSPORINE [Suspect]
     Active Substance: CYCLOSPORINE
     Indication: Topical steroid withdrawal reaction
     Route: 065
  2. CYCLOSPORINE [Suspect]
     Active Substance: CYCLOSPORINE
     Indication: Erythema
  3. METHOTREXATE [Suspect]
     Active Substance: METHOTREXATE
     Indication: Topical steroid withdrawal reaction
     Route: 065
  4. METHOTREXATE [Suspect]
     Active Substance: METHOTREXATE
     Indication: Erythema
  5. TACROLIMUS [Suspect]
     Active Substance: TACROLIMUS
     Indication: Topical steroid withdrawal reaction
     Route: 065
  6. TACROLIMUS [Suspect]
     Active Substance: TACROLIMUS
     Indication: Erythema
  7. TRIAMCINOLONE [Concomitant]
     Active Substance: TRIAMCINOLONE
     Indication: Steroid therapy
     Route: 061
  8. TRIAMCINOLONE [Concomitant]
     Active Substance: TRIAMCINOLONE
     Indication: Topical steroid withdrawal reaction
     Route: 061
  9. TRIAMCINOLONE [Concomitant]
     Active Substance: TRIAMCINOLONE
     Indication: Erythema
  10. DUPILUMAB [Concomitant]
     Active Substance: DUPILUMAB
     Indication: Topical steroid withdrawal reaction
     Route: 065
  11. DUPILUMAB [Concomitant]
     Active Substance: DUPILUMAB
     Indication: Erythema
  12. HYDROCORTISONE [Concomitant]
     Active Substance: HYDROCORTISONE
     Indication: Topical steroid withdrawal reaction
     Route: 065
  13. HYDROCORTISONE [Concomitant]
     Active Substance: HYDROCORTISONE
     Indication: Erythema
     Route: 065

REACTIONS (1)
  - Off label use [Unknown]
